FAERS Safety Report 7519219-6 (Version None)
Quarter: 2011Q2

REPORT INFORMATION
  Report Type: 
  Country: None (occurrence: None)
  Receive Date: 20110602
  Receipt Date: 20110216
  Transmission Date: 20111010
  Serious: No
  Sender: FDA-Public Use
  Company Number: US-BRISTOL-MYERS SQUIBB COMPANY-15556996

PATIENT

DRUGS (3)
  1. KOMBIGLYZE XR [Suspect]
  2. SAXAGLIPTIN [Concomitant]
  3. METFORMIN HCL [Concomitant]

REACTIONS (1)
  - ABDOMINAL PAIN UPPER [None]
